FAERS Safety Report 25389574 (Version 1)
Quarter: 2025Q2

REPORT INFORMATION
  Report Type: Spontaneous
  Country: CN (occurrence: CN)
  Receive Date: 20250603
  Receipt Date: 20250603
  Transmission Date: 20250717
  Serious: Yes (Hospitalization)
  Sender: ROCHE
  Company Number: CN-BoehringerIngelheim-2025-BI-073313

PATIENT
  Age: 67 Year
  Sex: Female
  Weight: 62.0 kg

DRUGS (2)
  1. ALTEPLASE [Suspect]
     Active Substance: ALTEPLASE
     Indication: Thrombolysis
     Route: 042
     Dates: start: 20250429, end: 20250429
  2. ALTEPLASE [Suspect]
     Active Substance: ALTEPLASE
     Indication: Cerebral infarction

REACTIONS (3)
  - Anaphylactic shock [Recovering/Resolving]
  - Capillary leak syndrome [Recovering/Resolving]
  - Blood gases abnormal [Unknown]

NARRATIVE: CASE EVENT DATE: 20250429
